FAERS Safety Report 25016511 (Version 1)
Quarter: 2025Q1

REPORT INFORMATION
  Report Type: Report from Study
  Country: US (occurrence: US)
  Receive Date: 20250227
  Receipt Date: 20250227
  Transmission Date: 20250409
  Serious: Yes (Other)
  Sender: ASCENDIS PHARMA
  Company Number: US-ASCENDIS PHARMA-2025US008008

PATIENT

DRUGS (1)
  1. LONAPEGSOMATROPIN [Suspect]
     Active Substance: LONAPEGSOMATROPIN
     Indication: Hypopituitarism
     Route: 058
     Dates: start: 202412

REACTIONS (3)
  - Peripheral swelling [Unknown]
  - Urticaria [Unknown]
  - Pruritus [Unknown]

NARRATIVE: CASE EVENT DATE: 20250216
